FAERS Safety Report 7683564-4 (Version None)
Quarter: 2011Q3

REPORT INFORMATION
  Report Type: 
  Country: None (occurrence: None)
  Receive Date: 20110815
  Receipt Date: 20110810
  Transmission Date: 20111222
  Serious: Yes (Hospitalization, Other)
  Sender: FDA-Public Use
  Company Number: AU-PFIZER INC-2011184122

PATIENT
  Sex: Female

DRUGS (2)
  1. TRAZODONE HCL [Suspect]
     Dosage: 2100 MG, UNK
     Route: 048
  2. MIRTAZAPINE [Suspect]
     Dosage: UNK

REACTIONS (3)
  - ALTERED STATE OF CONSCIOUSNESS [None]
  - SUICIDE ATTEMPT [None]
  - STRESS CARDIOMYOPATHY [None]
